FAERS Safety Report 16823263 (Version 1)
Quarter: 2019Q3

REPORT INFORMATION
  Report Type: Spontaneous
  Country: DE (occurrence: DE)
  Receive Date: 20190918
  Receipt Date: 20190918
  Transmission Date: 20191005
  Serious: Yes (Other)
  Sender: FDA-Public Use
  Company Number: DE-HIKMA PHARMACEUTICALS USA INC.-DE-H14001-19-46979

PATIENT
  Age: 1 Day
  Sex: Female
  Weight: 2.39 kg

DRUGS (9)
  1. EPIRUBICIN [Suspect]
     Active Substance: EPIRUBICIN
     Indication: INFLAMMATORY CARCINOMA OF THE BREAST
     Dosage: WEEK 22+5, 25+6, ?, 31+6
     Route: 064
  2. GRANISETRON [Concomitant]
     Active Substance: GRANISETRON
     Indication: INFLAMMATORY CARCINOMA OF THE BREAST
     Dosage: 1 [MG/D ]
     Route: 064
  3. RANITIDINE. [Concomitant]
     Active Substance: RANITIDINE
     Indication: INFLAMMATORY CARCINOMA OF THE BREAST
     Dosage: 50 [MG/D ]
     Route: 064
  4. PACLITAXEL. [Suspect]
     Active Substance: PACLITAXEL
     Indication: INFLAMMATORY CARCINOMA OF THE BREAST
     Dosage: 12 CYCLES, UNKNOWN WHEN
     Route: 064
  5. DEXAMETHASONE. [Suspect]
     Active Substance: DEXAMETHASONE
     Indication: INFLAMMATORY CARCINOMA OF THE BREAST
     Dosage: 8 [MG/D ]/ 4-8 MG/D ()
     Route: 064
  6. DIMETINDENE [Concomitant]
     Active Substance: DIMETHINDENE
     Indication: INFLAMMATORY CARCINOMA OF THE BREAST
     Dosage: 4 [MG/D ]
     Route: 064
  7. UROMITEXAN [Concomitant]
     Active Substance: MESNA
     Indication: DRUG TOXICITY PROPHYLAXIS
     Dosage: 400 [MG/D ]
     Route: 064
  8. CYCLOPHOSPHAMIDE. [Suspect]
     Active Substance: CYCLOPHOSPHAMIDE
     Indication: INFLAMMATORY CARCINOMA OF THE BREAST
     Dosage: WEEK 22+5, 25+6, ?, 31+6 ()
     Route: 064
  9. EMEND [Concomitant]
     Active Substance: APREPITANT
     Indication: PROPHYLAXIS OF NAUSEA AND VOMITING
     Dosage: ()
     Route: 064

REACTIONS (2)
  - Foetal exposure during pregnancy [Recovered/Resolved]
  - Small for dates baby [Recovering/Resolving]

NARRATIVE: CASE EVENT DATE: 20190119
